FAERS Safety Report 24663373 (Version 1)
Quarter: 2024Q4

REPORT INFORMATION
  Report Type: Spontaneous
  Country: FR (occurrence: FR)
  Receive Date: 20241126
  Receipt Date: 20241126
  Transmission Date: 20250114
  Serious: Yes (Hospitalization, Other)
  Sender: AUROBINDO
  Company Number: FR-AFSSAPS-GR2024001378

PATIENT
  Age: 27 Year
  Sex: Female
  Weight: 94 kg

DRUGS (3)
  1. OXAZEPAM [Suspect]
     Active Substance: OXAZEPAM
     Indication: Product used for unknown indication
     Dosage: 300 MILLIGRAM 1 TOTAL
     Route: 048
     Dates: start: 20240915, end: 20240915
  2. ESCITALOPRAM [Suspect]
     Active Substance: ESCITALOPRAM OXALATE
     Indication: Product used for unknown indication
     Dosage: 280 MILLIGRAM 1 TOTAL
     Route: 048
     Dates: start: 20240915, end: 20240915
  3. ACETAMINOPHEN [Concomitant]
     Active Substance: ACETAMINOPHEN
     Indication: Product used for unknown indication
     Dosage: 4 GRAM 1 TOTAL
     Route: 048
     Dates: start: 20240915, end: 20240915

REACTIONS (2)
  - Altered state of consciousness [Recovering/Resolving]
  - Poisoning deliberate [Recovered/Resolved]

NARRATIVE: CASE EVENT DATE: 20240915
